FAERS Safety Report 13833740 (Version 1)
Quarter: 2017Q3

REPORT INFORMATION
  Report Type: Spontaneous
  Country: IT (occurrence: IT)
  Receive Date: 20170804
  Receipt Date: 20170804
  Transmission Date: 20171127
  Serious: Yes (Life-Threatening, Other)
  Sender: FDA-Public Use
  Company Number: IT-MACLEODS PHARMACEUTICALS US LTD-MAC2017005528

PATIENT

DRUGS (12)
  1. LABETALOL [Suspect]
     Active Substance: LABETALOL\LABETALOL HYDROCHLORIDE
     Dosage: 60 MG/1 HOUR
     Route: 042
  2. LIDOCAINE. [Concomitant]
     Active Substance: LIDOCAINE
     Indication: PRODUCT USED FOR UNKNOWN INDICATION
     Dosage: UNK, TEST DOSE
     Route: 008
  3. ROPIVACAINE [Concomitant]
     Active Substance: ROPIVACAINE
     Dosage: 0.075 % 10 ML/HR
     Route: 008
  4. ENALAPRIL [Suspect]
     Active Substance: ENALAPRIL
     Indication: HYPERTENSION
     Dosage: UNK
     Route: 048
  5. FENOLDOPAM [Suspect]
     Active Substance: FENOLDOPAM
     Dosage: 1.5 ?G/KG/1 MINUTE
     Route: 042
  6. GLYCERYL TRINITRATE [Suspect]
     Active Substance: NITROGLYCERIN
     Indication: HYPERTENSION
     Dosage: 2 MCG/KG/1 MIN
     Route: 042
  7. LABETALOL [Suspect]
     Active Substance: LABETALOL\LABETALOL HYDROCHLORIDE
     Indication: HYPERTENSION
     Dosage: 40 MG/1 HOUR
     Route: 042
  8. MORPHINE [Concomitant]
     Active Substance: MORPHINE
     Indication: PAIN
     Dosage: 20 MG/DAY
     Route: 065
  9. ROPIVACAINE [Concomitant]
     Active Substance: ROPIVACAINE
     Indication: PRODUCT USED FOR UNKNOWN INDICATION
     Dosage: 0.1 % 15 ML, UNK
     Route: 008
  10. CLONIDINE. [Concomitant]
     Active Substance: CLONIDINE
     Indication: PRODUCT USED FOR UNKNOWN INDICATION
     Dosage: 1.25 MCG/ML AT 10 ML/H
     Route: 008
  11. AMLODIPINE BESYLATE. [Suspect]
     Active Substance: AMLODIPINE BESYLATE
     Indication: HYPERTENSION
     Dosage: UNK
     Route: 048
  12. FENOLDOPAM [Suspect]
     Active Substance: FENOLDOPAM
     Indication: HYPERTENSION
     Dosage: 0.5 ?G/KG/1 MINUTE
     Route: 042

REACTIONS (1)
  - Drug ineffective [Unknown]
